FAERS Safety Report 12834313 (Version 1)
Quarter: 2016Q4

REPORT INFORMATION
  Report Type: Spontaneous
  Country: US (occurrence: US)
  Receive Date: 20161010
  Receipt Date: 20161010
  Transmission Date: 20170207
  Serious: Yes (Hospitalization, Other)
  Sender: FDA-Public Use
  Company Number: US-BELCHER PHARMACEUTICALS, LLC-2016VTS00147

PATIENT
  Age: 61 Year
  Sex: Female
  Weight: 68.93 kg

DRUGS (7)
  1. TRIAMTERENE. [Concomitant]
     Active Substance: TRIAMTERENE
  2. ALLEGRA [Concomitant]
     Active Substance: FEXOFENADINE HYDROCHLORIDE
  3. VITAMIN D [Concomitant]
     Active Substance: CHOLECALCIFEROL
  4. PROBIOTIC [Concomitant]
     Active Substance: PROBIOTICS NOS
  5. DOMPERIDONE [Concomitant]
     Active Substance: DOMPERIDONE
  6. HYOSCYAMINE SULFATE SL [Suspect]
     Active Substance: HYOSCYAMINE SULFATE
     Indication: OESOPHAGEAL SPASM
     Dosage: UNK, AS NEEDED
     Route: 060
  7. NEXIUM [Concomitant]
     Active Substance: ESOMEPRAZOLE MAGNESIUM

REACTIONS (2)
  - Infection [Recovered/Resolved]
  - Drug ineffective [Recovered/Resolved]

NARRATIVE: CASE EVENT DATE: 20160910
